FAERS Safety Report 7198937-6 (Version None)
Quarter: 2010Q4

REPORT INFORMATION
  Report Type: 
  Country: None (occurrence: None)
  Receive Date: 20101227
  Receipt Date: 20101224
  Transmission Date: 20110411
  Serious: Yes (Death)
  Sender: FDA-Public Use
  Company Number: GB-AMGEN-GBRCT2010011127

PATIENT

DRUGS (7)
  1. PANITUMUMAB [Suspect]
     Dosage: UNK
     Dates: start: 20101018, end: 20101208
  2. EPIRUBICIN [Suspect]
     Dosage: UNK
     Dates: start: 20101018, end: 20101208
  3. OXALIPLATIN [Suspect]
     Dosage: UNK
     Dates: start: 20101018, end: 20101208
  4. CAPECITABINE [Suspect]
     Dosage: UNK
     Dates: start: 20101018, end: 20101208
  5. RAMIPRIL [Concomitant]
     Indication: HYPERTENSION
     Dosage: 5 MG, UNK
     Dates: start: 20101012
  6. OMEPRAZOLE [Concomitant]
     Dosage: 20 MG, UNK
     Dates: start: 20101012
  7. GAVISCON                           /00237601/ [Concomitant]
     Dosage: 5 ML, UNK
     Dates: start: 20101012

REACTIONS (1)
  - INTESTINAL PERFORATION [None]
